FAERS Safety Report 4878947-1 (Version None)
Quarter: 2006Q1

REPORT INFORMATION
  Report Type: 
  Country: None (occurrence: None)
  Receive Date: 20060110
  Receipt Date: 20060110
  Transmission Date: 20060701
  Serious: Yes (Life-Threatening, Hospitalization, Other)
  Sender: FDA-Public Use
  Company Number: None

PATIENT
  Age: 70 Year
  Sex: Female
  Weight: 88.4514 kg

DRUGS (5)
  1. ZETIA [Suspect]
     Indication: BLOOD CHOLESTEROL INCREASED
     Dosage: 10 MG Q QD
     Dates: start: 20020101, end: 20050101
  2. ALTACE [Concomitant]
  3. ASPIRIN [Concomitant]
  4. METOPROLONOL [Concomitant]
  5. HYDROTHAZIDE [Concomitant]

REACTIONS (13)
  - BLOOD IMMUNOGLOBULIN G DECREASED [None]
  - CATARACT [None]
  - DERMATITIS CONTACT [None]
  - FURUNCLE [None]
  - HERPES ZOSTER [None]
  - LOSS OF LIBIDO [None]
  - MADAROSIS [None]
  - MALAISE [None]
  - PERICARDITIS [None]
  - PNEUMONIA [None]
  - RASH [None]
  - SKIN ULCER [None]
  - VIRAL INFECTION [None]
